FAERS Safety Report 4737811-9 (Version None)
Quarter: 2005Q3

REPORT INFORMATION
  Report Type: 
  Country: None (occurrence: None)
  Receive Date: 20050805
  Receipt Date: 20050727
  Transmission Date: 20060218
  Serious: Yes (Hospitalization)
  Sender: FDA-Public Use
  Company Number: B0388242B

PATIENT
  Sex: Female

DRUGS (6)
  1. AZATHIOPRINE [Suspect]
     Dosage: 100 MG/ PER DAY/ TRANSPLACENTARY
     Route: 064
  2. SEPTRA [Suspect]
     Dosage: TRANSPLACENTARY
     Route: 064
  3. PREDNISOLONE (PREDNISOLONE) (GENERIC) [Suspect]
     Dosage: PER DAY
  4. ZINACEF [Suspect]
     Dosage: 35 MG/ PER DAY
  5. CALCIUM SALT  (CALCIUM SALT) [Suspect]
  6. CYCLOSPORINE [Suspect]
     Dosage: 150 MG/ PER DAY/ TRANSPLACENTARY
     Route: 064

REACTIONS (4)
  - CAESAREAN SECTION [None]
  - DRUG EXPOSURE DURING PREGNANCY [None]
  - FOETAL DISTRESS SYNDROME [None]
  - SINGLE UMBILICAL ARTERY [None]
